FAERS Safety Report 7062423-4 (Version None)
Quarter: 2010Q4

REPORT INFORMATION
  Report Type: 
  Country: None (occurrence: None)
  Receive Date: 20101026
  Receipt Date: 20090626
  Transmission Date: 20110411
  Serious: No
  Sender: FDA-Public Use
  Company Number: US-PFIZER INC-2009234097

PATIENT
  Sex: Male
  Weight: 71.2 kg

DRUGS (10)
  1. LIPITOR [Suspect]
     Indication: MYOCARDIAL INFARCTION
     Dosage: 10 MG, 1X/DAY
     Route: 048
     Dates: start: 20020201
  2. VASOTEC [Concomitant]
     Dosage: UNK
     Dates: start: 20020101
  3. ENALAPRIL [Concomitant]
     Dosage: UNK
  4. TOPROL-XL [Concomitant]
     Dosage: UNK
     Dates: start: 20020101
  5. METOPROLOL [Concomitant]
     Dosage: UNK
  6. LASIX [Concomitant]
     Dosage: UNK
     Dates: start: 20020101
  7. DYAZIDE [Concomitant]
     Dosage: UNK
  8. SULAR [Concomitant]
     Dosage: UNK
     Dates: start: 20020101
  9. ASPIRIN [Concomitant]
     Dosage: UNK
     Dates: start: 20020101
  10. ZOCOR [Concomitant]
     Dosage: UNK
     Dates: start: 20020101, end: 20030101

REACTIONS (5)
  - CONSTIPATION [None]
  - FATIGUE [None]
  - HEADACHE [None]
  - PAIN IN EXTREMITY [None]
  - SOMNOLENCE [None]
